FAERS Safety Report 13926464 (Version 1)
Quarter: 2017Q3

REPORT INFORMATION
  Report Type: Report from Study
  Country: US (occurrence: US)
  Receive Date: 20170831
  Receipt Date: 20170831
  Transmission Date: 20171127
  Serious: Yes (Hospitalization)
  Sender: FDA-Public Use
  Company Number: US-ALKERMES INC.-ALK-2017-003539

PATIENT
  Sex: Male

DRUGS (1)
  1. VIVITROL [Suspect]
     Active Substance: NALTREXONE
     Indication: PRODUCT USED FOR UNKNOWN INDICATION
     Dosage: 380 MG, QMO
     Route: 030
     Dates: start: 201707

REACTIONS (3)
  - Hypotension [Not Recovered/Not Resolved]
  - Fall [Not Recovered/Not Resolved]
  - Alcohol use [Not Recovered/Not Resolved]

NARRATIVE: CASE EVENT DATE: 20170826
